FAERS Safety Report 24618690 (Version 1)
Quarter: 2024Q4

REPORT INFORMATION
  Report Type: Report from Study
  Country: US (occurrence: US)
  Receive Date: 20241114
  Receipt Date: 20241114
  Transmission Date: 20250115
  Serious: Yes (Hospitalization)
  Sender: TAKEDA
  Company Number: US-TAKEDA-2024TUS112304

PATIENT
  Age: 40 Year
  Sex: Male

DRUGS (1)
  1. ADAMTS13, RECOMBINANT-KRHN [Suspect]
     Active Substance: ADAMTS13, RECOMBINANT-KRHN
     Indication: Congenital thrombotic thrombocytopenic purpura
     Dosage: UNK

REACTIONS (2)
  - Hospitalisation [Unknown]
  - Insurance issue [Unknown]

NARRATIVE: CASE EVENT DATE: 20240801
